FAERS Safety Report 5751719-1 (Version None)
Quarter: 2008Q2

REPORT INFORMATION
  Report Type: 
  Country: None (occurrence: None)
  Receive Date: 20080514
  Receipt Date: 20080502
  Transmission Date: 20081010
  Serious: Yes (Life-Threatening, Hospitalization)
  Sender: FDA-Public Use
  Company Number: WSDF_00701

PATIENT
  Age: 12 Year
  Sex: Female
  Weight: 105 kg

DRUGS (2)
  1. WINRHO SDF [Suspect]
     Indication: THROMBOCYTOPENIC PURPURA
     Dosage: 50 ?G/KG ONCE IV
     Route: 042
     Dates: start: 20050826, end: 20050826
  2. WINRHO SDF [Suspect]
     Indication: THROMBOCYTOPENIC PURPURA
     Dosage: 50 ?G/KG ONCE IV
     Route: 042
     Dates: start: 20050827, end: 20050827

REACTIONS (19)
  - AGGRESSION [None]
  - AGITATION [None]
  - BACK PAIN [None]
  - CEREBRAL VENOUS THROMBOSIS [None]
  - CONFUSIONAL STATE [None]
  - ENCEPHALOPATHY [None]
  - HAEMOLYTIC ANAEMIA [None]
  - HAEMORRHAGIC INFARCTION [None]
  - INTRACRANIAL PRESSURE INCREASED [None]
  - MENTAL STATUS CHANGES [None]
  - OPTIC ATROPHY [None]
  - OVERDOSE [None]
  - PAPILLOEDEMA [None]
  - THROMBOCYTOPENIA [None]
  - VENOUS OCCLUSION [None]
  - VISION BLURRED [None]
  - VISUAL DISTURBANCE [None]
  - VISUAL FIELD DEFECT [None]
  - VOMITING [None]
